FAERS Safety Report 4374392-6 (Version None)
Quarter: 2004Q2

REPORT INFORMATION
  Report Type: 
  Country: None (occurrence: None)
  Receive Date: 20040608
  Receipt Date: 20040608
  Transmission Date: 20050107
  Serious: Yes (Death, Hospitalization)
  Sender: FDA-Public Use
  Company Number: None

PATIENT
  Age: 8 Month
  Sex: Male
  Weight: 10 kg

DRUGS (3)
  1. CYTARABINE [Suspect]
     Indication: ACUTE MYELOID LEUKAEMIA
     Dosage: 33MG Q 12 HOURS INTRAVENOUS
     Route: 042
     Dates: start: 20040517, end: 20040526
  2. DAUNORUBICIN HCL [Suspect]
     Dosage: 16.7MG Q6 HOURS INTRAVENOUS
     Route: 042
     Dates: start: 20040517, end: 20040521
  3. ETOPOSIDE [Concomitant]

REACTIONS (4)
  - ACUTE RESPIRATORY DISTRESS SYNDROME [None]
  - HAEMORRHAGE [None]
  - HEPATOSPLENOMEGALY [None]
  - MULTI-ORGAN FAILURE [None]
